FAERS Safety Report 26121265 (Version 1)
Quarter: 2025Q4

REPORT INFORMATION
  Report Type: Spontaneous
  Country: US (occurrence: None)
  Receive Date: 20251203
  Receipt Date: 20251203
  Transmission Date: 20260118
  Serious: Yes (Death)
  Sender: FDA-CTU
  Company Number: None

PATIENT
  Age: 83 Year
  Sex: Male
  Weight: 77.4 kg

DRUGS (15)
  1. REVLIMID [Suspect]
     Active Substance: LENALIDOMIDE
     Indication: Plasma cell myeloma
     Dosage: FREQUENCY : DAILY;?
     Route: 048
     Dates: start: 20240717, end: 20251122
  2. CHOLESTYRAMINE LIGHT PACKET [Concomitant]
  3. TRESIBA FLEXTOUCH 100 UNIT/ML [Concomitant]
  4. RAMELTEON 8 MG TABLET [Concomitant]
  5. tramadol 50 mg tablet [Concomitant]
  6. atorvastatin 10 mg tablet [Concomitant]
  7. doxepin 10 mg capsule [Concomitant]
  8. ferrous sulfate 325 mg (65 mg iron) tablet [Concomitant]
  9. glimepiride 2 mg tablet [Concomitant]
  10. Jardiance 25 mg tablet [Concomitant]
  11. levothyroxine 100 mcg capsule [Concomitant]
  12. metformin 1,000 mg tablet [Concomitant]
  13. Novolog U-100 Insulin aspart 100 unit/mL subcutaneous solution [Concomitant]
  14. omeprazole 20 mg capsule,delayed release [Concomitant]
  15. Tresiba FlexTouch U-100 insulin 100 unit/mL (3 mL) subcutaneous pen [Concomitant]

REACTIONS (1)
  - Death [None]

NARRATIVE: CASE EVENT DATE: 20251120
